FAERS Safety Report 7370040-1 (Version None)
Quarter: 2011Q1

REPORT INFORMATION
  Report Type: 
  Country: None (occurrence: None)
  Receive Date: 20110323
  Receipt Date: 20110314
  Transmission Date: 20110831
  Serious: Yes (Hospitalization)
  Sender: FDA-Public Use
  Company Number: US-ASTRAZENECA-2011SE14083

PATIENT
  Age: 80 Year
  Sex: Female
  Weight: 65.8 kg

DRUGS (6)
  1. PRILOSEC [Concomitant]
     Route: 048
  2. VARIOUS SUPPLEMENTS [Concomitant]
     Route: 048
  3. CRESTOR [Suspect]
     Indication: CARDIOVASCULAR EVENT PROPHYLAXIS
     Route: 048
     Dates: start: 20060101
  4. ATENOLOL [Concomitant]
     Route: 048
  5. ASPIRIN [Concomitant]
     Route: 048
  6. EVISTA [Concomitant]
     Dates: end: 20110301

REACTIONS (2)
  - PAIN IN EXTREMITY [None]
  - ARTHRALGIA [None]
